FAERS Safety Report 24217413 (Version 1)
Quarter: 2024Q3

REPORT INFORMATION
  Report Type: Spontaneous
  Country: US (occurrence: US)
  Receive Date: 20240816
  Receipt Date: 20240816
  Transmission Date: 20241017
  Serious: No
  Sender: TEVA
  Company Number: US-TEVA-VS-3228871

PATIENT
  Age: 54 Year
  Sex: Male

DRUGS (1)
  1. AUSTEDO [Suspect]
     Active Substance: DEUTETRABENAZINE
     Indication: Product used for unknown indication
     Dosage: 2 TABLETS BY MOUTH TWICE A DAY WITH FOOD
     Route: 048

REACTIONS (4)
  - Gait inability [Unknown]
  - Malaise [Unknown]
  - Speech disorder [Unknown]
  - Product prescribing issue [Unknown]
